FAERS Safety Report 7979043-7 (Version None)
Quarter: 2011Q4

REPORT INFORMATION
  Report Type: 
  Country: None (occurrence: None)
  Receive Date: 20111214
  Receipt Date: 20111209
  Transmission Date: 20120403
  Serious: Yes (Other)
  Sender: FDA-Public Use
  Company Number: US-PFIZER INC-2011246311

PATIENT
  Sex: Female

DRUGS (4)
  1. LIPITOR [Suspect]
     Indication: HYPERLIPIDAEMIA
     Dosage: 40 MG, 1X/DAY
     Route: 048
  2. OMEPRAZOLE [Concomitant]
     Dosage: 20 MG, 2X/DAY
  3. PRISTIQ [Concomitant]
     Dosage: 100 MG, 1X/DAY
  4. AMLODIPINE [Concomitant]
     Dosage: 5 MG, 1X/DAY

REACTIONS (1)
  - MEMORY IMPAIRMENT [None]
